FAERS Safety Report 15318948 (Version 1)
Quarter: 2018Q3

REPORT INFORMATION
  Report Type: Spontaneous
  Country: US (occurrence: US)
  Receive Date: 20180820
  Receipt Date: 20180820
  Transmission Date: 20181010
  Serious: Yes (Other)
  Sender: FDA-Public Use
  Company Number: None

PATIENT
  Age: 56 Year
  Weight: 81.9 kg

DRUGS (1)
  1. YESCARTA [Suspect]
     Active Substance: AXICABTAGENE CILOLEUCEL
     Indication: DIFFUSE LARGE B-CELL LYMPHOMA REFRACTORY
     Dosage: ?          OTHER FREQUENCY:ONCE;?
     Dates: start: 20180702

REACTIONS (4)
  - Encephalopathy [None]
  - Neurological symptom [None]
  - Neutropenia [None]
  - Cytokine release syndrome [None]

NARRATIVE: CASE EVENT DATE: 20180702
